FAERS Safety Report 4372775-1 (Version None)
Quarter: 2004Q2

REPORT INFORMATION
  Report Type: 
  Country: None (occurrence: None)
  Receive Date: 20040526
  Receipt Date: 20040513
  Transmission Date: 20050107
  Serious: Yes (Death, Other)
  Sender: FDA-Public Use
  Company Number: 2004028875

PATIENT
  Age: 63 Year
  Sex: Male

DRUGS (1)
  1. ZOLOFT [Suspect]
     Indication: ILL-DEFINED DISORDER

REACTIONS (3)
  - ARRHYTHMIA [None]
  - ARTERIOSCLEROSIS [None]
  - DRUG TOXICITY [None]
